FAERS Safety Report 8457548-2 (Version None)
Quarter: 2012Q2

REPORT INFORMATION
  Report Type: 
  Country: None (occurrence: None)
  Receive Date: 20120622
  Receipt Date: 20120614
  Transmission Date: 20120825
  Serious: Yes (Hospitalization)
  Sender: FDA-Public Use
  Company Number: US-BIOGENIDEC-2012BI021519

PATIENT
  Age: 37 Year
  Sex: Female

DRUGS (1)
  1. TYSABRI [Suspect]
     Indication: MULTIPLE SCLEROSIS
     Route: 042
     Dates: start: 20101025

REACTIONS (6)
  - PAIN [None]
  - SPEECH DISORDER [None]
  - BLOOD POTASSIUM DECREASED [None]
  - FATIGUE [None]
  - GAIT DISTURBANCE [None]
  - BLOOD SODIUM DECREASED [None]
